FAERS Safety Report 7380041-5 (Version None)
Quarter: 2011Q1

REPORT INFORMATION
  Report Type: 
  Country: None (occurrence: None)
  Receive Date: 20110324
  Receipt Date: 20110324
  Transmission Date: 20110831
  Serious: Yes (Other)
  Sender: FDA-Public Use
  Company Number: None

PATIENT
  Age: 54 Year
  Weight: 51.7101 kg

DRUGS (1)
  1. TAMOXIFEN CITRATE [Suspect]
     Indication: BREAST CANCER
     Dosage: 1 TABLET ONCE A DAY

REACTIONS (3)
  - CORNEAL OEDEMA [None]
  - VISION BLURRED [None]
  - PHOTOPHOBIA [None]
